FAERS Safety Report 22366035 (Version 1)
Quarter: 2023Q2

REPORT INFORMATION
  Report Type: Spontaneous
  Country: US (occurrence: US)
  Receive Date: 20230525
  Receipt Date: 20230525
  Transmission Date: 20230722
  Serious: Yes (Death)
  Sender: FDA-Public Use
  Company Number: US-SPECGX-T202301199

PATIENT
  Age: 42 Year
  Sex: Female

DRUGS (2)
  1. METHADONE [Suspect]
     Active Substance: METHADONE HYDROCHLORIDE
     Indication: Product used for unknown indication
     Dosage: UNK
     Route: 065
  2. ACETAMINOPHEN [Suspect]
     Active Substance: ACETAMINOPHEN
     Indication: Product used for unknown indication
     Dosage: UNK
     Route: 065

REACTIONS (15)
  - Acute lung injury [Fatal]
  - Metabolic acidosis [Fatal]
  - Coagulopathy [Fatal]
  - Leukocytosis [Fatal]
  - Acute kidney injury [Fatal]
  - Hypotension [Fatal]
  - Tachycardia [Fatal]
  - Acute respiratory distress syndrome [Fatal]
  - Thrombocytopenia [Fatal]
  - Ventricular arrhythmia [Fatal]
  - Coma [Fatal]
  - Depressed level of consciousness [Fatal]
  - Electrocardiogram QT prolonged [Fatal]
  - Cardiac arrest [Fatal]
  - Toxicity to various agents [Fatal]
